FAERS Safety Report 5613859-7 (Version None)
Quarter: 2008Q1

REPORT INFORMATION
  Report Type: 
  Country: None (occurrence: None)
  Receive Date: 20080205
  Receipt Date: 20080131
  Transmission Date: 20080703
  Serious: Yes (Death)
  Sender: FDA-Public Use
  Company Number: PHNR2008AU00511

PATIENT
  Age: 81 Year
  Sex: Female

DRUGS (1)
  1. LAMISIL [Suspect]
     Indication: FUNGAL INFECTION
     Dosage: 250 MG, QD
     Route: 048

REACTIONS (2)
  - HEPATITIS CHOLESTATIC [None]
  - HEPATORENAL FAILURE [None]
